FAERS Safety Report 16976291 (Version 1)
Quarter: 2019Q4

REPORT INFORMATION
  Report Type: Spontaneous
  Country: BG (occurrence: BG)
  Receive Date: 20191030
  Receipt Date: 20191030
  Transmission Date: 20200122
  Serious: Yes (Other)
  Sender: FDA-Public Use
  Company Number: BG-009507513-1910BGR016087

PATIENT

DRUGS (1)
  1. KEYTRUDA [Suspect]
     Active Substance: PEMBROLIZUMAB
     Indication: MALIGNANT MELANOMA
     Dosage: 2 MILLIGRAM/KILOGRAM
     Dates: start: 20161007, end: 20181119

REACTIONS (2)
  - Tumour pseudoprogression [Unknown]
  - Vitiligo [Unknown]

NARRATIVE: CASE EVENT DATE: 20170109
